FAERS Safety Report 11213617 (Version 1)
Quarter: 2015Q2

REPORT INFORMATION
  Report Type: Other
  Country: NL (occurrence: NL)
  Receive Date: 20150623
  Receipt Date: 20150623
  Transmission Date: 20150821
  Serious: Yes (Hospitalization)
  Sender: FDA-Public Use
  Company Number: NL-MYLANLABS-2015M1019682

PATIENT

DRUGS (6)
  1. ASCAL BRISPER CARDIO-NEURO [Suspect]
     Active Substance: ASPIRIN\CARBASPIRIN CALCIUM
     Indication: PROPHYLAXIS
     Dosage: 1 KEER PER DAG 1 STUK(S)
     Route: 048
     Dates: start: 200702
  2. CALCI CHEW D3 KAUWTABLET  500MG/400IE [Concomitant]
     Dosage: 1 KEER PER DAG 1 STUK(S)
     Route: 048
     Dates: start: 2008
  3. CLOPIDOGREL [Suspect]
     Active Substance: CLOPIDOGREL BISULFATE
     Indication: PROPHYLAXIS
     Dosage: 1 KEER PER DAG 1 STUK(S)
     Route: 048
     Dates: start: 201502, end: 20150325
  4. SIMVASTATINE TABLET FO 40MG [Concomitant]
     Dosage: 1 KEER PER DAG 1 STUK(S)
     Route: 048
  5. NEBIVOLOL TABLET 5MG [Concomitant]
     Dosage: 1 KEER PER DAG 1 STUK(S)
     Route: 048
     Dates: start: 2008
  6. LERCANIDIPINE TABLET OMHULD 20MG [Concomitant]
     Dosage: 1 KEER PER DAG 1 STUK(S)
     Route: 048
     Dates: start: 2008

REACTIONS (1)
  - Cerebrospinal fluid leakage [Recovered/Resolved]

NARRATIVE: CASE EVENT DATE: 20150320
